FAERS Safety Report 6134620-3 (Version None)
Quarter: 2009Q1

REPORT INFORMATION
  Report Type: 
  Country: None (occurrence: None)
  Receive Date: 20090327
  Receipt Date: 20090316
  Transmission Date: 20090719
  Serious: Yes (Other)
  Sender: FDA-Public Use
  Company Number: US-JNJFOC-20090304068

PATIENT
  Age: 80 Year
  Sex: Male

DRUGS (4)
  1. REMICADE [Suspect]
     Indication: RHEUMATOID ARTHRITIS
     Route: 042
  2. METHOTREXATE [Concomitant]
  3. LOPRESSOR [Concomitant]
  4. LISINOPRIL [Concomitant]
     Indication: HYPERTENSION

REACTIONS (1)
  - LIP AND/OR ORAL CAVITY CANCER [None]
